FAERS Safety Report 5021118-9 (Version None)
Quarter: 2006Q2

REPORT INFORMATION
  Report Type: 
  Country: None (occurrence: None)
  Receive Date: 20060605
  Receipt Date: 20060523
  Transmission Date: 20061013
  Serious: Yes (Hospitalization, Other)
  Sender: FDA-Public Use
  Company Number: 2006068506

PATIENT
  Age: 23 Year
  Sex: Female

DRUGS (1)
  1. CELEBREX [Suspect]
     Indication: NECK INJURY
     Dosage: 200 MG (200 MG, 1 IN 1 D),
     Dates: start: 19990801

REACTIONS (3)
  - CEREBROVASCULAR ACCIDENT [None]
  - GALLBLADDER OPERATION [None]
  - HYPERTENSION [None]
